FAERS Safety Report 22227900 (Version 2)
Quarter: 2023Q2

REPORT INFORMATION
  Report Type: Spontaneous
  Country: PT (occurrence: PT)
  Receive Date: 20230419
  Receipt Date: 20230421
  Transmission Date: 20230722
  Serious: Yes (Life-Threatening)
  Sender: FDA-Public Use
  Company Number: PT-AGUETTANT-2023000385

PATIENT
  Age: 53 Year
  Sex: Female
  Weight: 37 kg

DRUGS (1)
  1. EPINEPHRINE [Suspect]
     Active Substance: EPINEPHRINE
     Indication: Cerebral hypoperfusion
     Dosage: 50 MICROGRAM (BOLUS)
     Route: 042

REACTIONS (1)
  - Drug ineffective [Recovered/Resolved]
